FAERS Safety Report 11689977 (Version 3)
Quarter: 2016Q1

REPORT INFORMATION
  Report Type: Spontaneous
  Country: JP (occurrence: JP)
  Receive Date: 20151102
  Receipt Date: 20160129
  Transmission Date: 20160525
  Serious: Yes (Death, Hospitalization, Other)
  Sender: FDA-Public Use
  Company Number: JP-PFIZER INC-2015367561

PATIENT
  Age: 77 Year
  Sex: Male
  Weight: 56 kg

DRUGS (23)
  1. LINTON [Concomitant]
     Active Substance: HALOPERIDOL
     Dosage: UNK
     Dates: start: 20150329, end: 20150329
  2. CILOSTAZOL. [Concomitant]
     Active Substance: CILOSTAZOL
     Dosage: UNK
     Dates: end: 20150330
  3. CAMPTO [Suspect]
     Active Substance: IRINOTECAN
     Dosage: 100 MG, 1X/DAY (63.8 MG/M2)
     Route: 041
     Dates: start: 20150213, end: 20150213
  4. ROHYPNOL [Concomitant]
     Active Substance: FLUNITRAZEPAM
     Dosage: UNK
     Dates: start: 20150329, end: 20150329
  5. MAXIPIME [Concomitant]
     Active Substance: CEFEPIME HYDROCHLORIDE
     Dosage: UNK
     Dates: start: 20150327, end: 20150330
  6. NAUZELIN [Concomitant]
     Active Substance: DOMPERIDONE
     Dosage: UNK
     Dates: start: 20150205, end: 20150316
  7. BACTRAMIN [Concomitant]
     Active Substance: SULFAMETHOXAZOLE\TRIMETHOPRIM
     Dosage: UNK
     Dates: start: 20150327, end: 20150330
  8. NEXIUM [Concomitant]
     Active Substance: ESOMEPRAZOLE MAGNESIUM
     Dosage: UNK
     Dates: end: 20150330
  9. ITOPRIDE HYDROCHLORIDE [Concomitant]
     Active Substance: ITOPRIDE HYDROCHLORIDE
     Dosage: UNK
     Dates: end: 20150330
  10. CAMPTO [Suspect]
     Active Substance: IRINOTECAN
     Dosage: 100 MG, 1X/DAY
     Route: 041
     Dates: start: 20150227, end: 20150227
  11. CAMPTO [Suspect]
     Active Substance: IRINOTECAN
     Dosage: 100 MG, 1X/DAY
     Route: 041
     Dates: start: 20150306, end: 20150306
  12. CAMPTO [Suspect]
     Active Substance: IRINOTECAN
     Dosage: 100 MG, 1X/DAY
     Route: 041
     Dates: start: 20150313, end: 20150313
  13. ALOXI [Concomitant]
     Active Substance: PALONOSETRON HYDROCHLORIDE
     Dosage: UNK
     Dates: start: 20150205, end: 20150313
  14. FAMOTIDINE. [Concomitant]
     Active Substance: FAMOTIDINE
     Dosage: UNK
     Dates: start: 20150327, end: 20150330
  15. CANDESARTAN CILEXETIL. [Concomitant]
     Active Substance: CANDESARTAN CILEXETIL
     Dosage: UNK
     Dates: end: 20150330
  16. CAMPTO [Suspect]
     Active Substance: IRINOTECAN
     Indication: GASTRIC CANCER
     Dosage: 120 MG, 1X/DAY ((76.5 MG/M2)
     Route: 041
     Dates: start: 20150205, end: 20150205
  17. MAGNESIUM OXIDE. [Concomitant]
     Active Substance: MAGNESIUM OXIDE
     Dosage: UNK
     Dates: start: 20150205, end: 20150316
  18. CYLOCIDE [Concomitant]
     Active Substance: CYTARABINE
     Dosage: UNK
     Dates: start: 20150126, end: 20150209
  19. METHOTREXATE [Concomitant]
     Active Substance: METHOTREXATE
     Dosage: UNK
     Dates: start: 20150126, end: 20150209
  20. SOLU-CORTEF [Concomitant]
     Active Substance: HYDROCORTISONE SODIUM SUCCINATE
     Dosage: UNK
     Dates: start: 20150327, end: 20150331
  21. SUCRALFATE HYDRATE [Concomitant]
     Dosage: UNK
     Dates: end: 20150330
  22. URSO [Concomitant]
     Active Substance: URSODIOL
     Dosage: UNK
     Dates: start: 20150205, end: 20150316
  23. SODIUM BICARBONATE. [Concomitant]
     Active Substance: SODIUM BICARBONATE
     Dosage: UNK
     Dates: start: 20150205, end: 20150316

REACTIONS (5)
  - Haemoglobin decreased [Not Recovered/Not Resolved]
  - Leukopenia [Recovered/Resolved]
  - Interstitial lung disease [Fatal]
  - Polyneuropathy [Unknown]
  - Neutropenia [Recovered/Resolved]

NARRATIVE: CASE EVENT DATE: 20150209
